FAERS Safety Report 4927572-2 (Version None)
Quarter: 2006Q1

REPORT INFORMATION
  Report Type: 
  Country: None (occurrence: None)
  Receive Date: 20060228
  Receipt Date: 20051220
  Transmission Date: 20060701
  Serious: Yes (Hospitalization)
  Sender: FDA-Public Use
  Company Number: CH-ROCHE-429322

PATIENT
  Age: 50 Year
  Sex: Male

DRUGS (5)
  1. CAPECITABINE [Suspect]
     Route: 048
     Dates: start: 20051205
  2. CAPECITABINE [Suspect]
     Route: 048
     Dates: start: 20051128, end: 20051204
  3. GEMCITABINE [Suspect]
     Dosage: DOSE REPORTED AS 1800 NO UNITS PROVIDED
     Route: 042
     Dates: start: 20051128
  4. 1 CONCOMITANT DRUG [Concomitant]
     Dosage: DRUG NAME REPORTED AS ^PEURORAL^
     Route: 048
     Dates: start: 20051111
  5. TRAMAL [Concomitant]
     Route: 048
     Dates: start: 20051212

REACTIONS (1)
  - CHOLANGITIS [None]
